FAERS Safety Report 6320200-3 (Version None)
Quarter: 2009Q3

REPORT INFORMATION
  Report Type: 
  Country: None (occurrence: None)
  Receive Date: 20090822
  Receipt Date: 20081027
  Transmission Date: 20100115
  Serious: No
  Sender: FDA-Public Use
  Company Number: US-ABBOTT-08P-163-0483741-00

PATIENT
  Sex: Female

DRUGS (11)
  1. NIASPAN [Suspect]
     Indication: BLOOD CHOLESTEROL
     Route: 048
     Dates: start: 20080101, end: 20080901
  2. NIASPAN [Suspect]
     Dosage: 2 - 500 MILLIGRAMS TABLETS DAILY
     Route: 048
     Dates: start: 20080901, end: 20080901
  3. NIASPAN [Suspect]
     Route: 048
     Dates: start: 20080901, end: 20081023
  4. NIASPAN [Suspect]
     Route: 048
     Dates: start: 20081024, end: 20081024
  5. NIASPAN [Suspect]
     Route: 048
     Dates: start: 20081025, end: 20081025
  6. NIASPAN [Suspect]
     Route: 048
     Dates: start: 20081026
  7. ATENOLOL [Concomitant]
     Indication: BLOOD PRESSURE
  8. AMLODIPINE [Concomitant]
     Indication: BLOOD PRESSURE
  9. HYDROCHLOROTHIAZIDE [Concomitant]
     Indication: BLOOD PRESSURE
  10. LISINOPRIL [Concomitant]
     Indication: BLOOD PRESSURE
     Dosage: 1/2 PILL
  11. ASPIRIN [Concomitant]
     Indication: DRUG USE FOR UNKNOWN INDICATION
     Dosage: 81 MG, 30 MINUTES BEFORE NIASPAN

REACTIONS (6)
  - BACK PAIN [None]
  - BLOOD CHOLESTEROL INCREASED [None]
  - BLOOD TRIGLYCERIDES INCREASED [None]
  - FLUSHING [None]
  - INTERVERTEBRAL DISC DISORDER [None]
  - PRURITUS [None]
